FAERS Safety Report 23954029 (Version 1)
Quarter: 2024Q2

REPORT INFORMATION
  Report Type: Spontaneous
  Country: US (occurrence: None)
  Receive Date: 20240609
  Receipt Date: 20240609
  Transmission Date: 20240717
  Serious: No
  Sender: FDA-Public Use
  Company Number: US-ROCHE-3399403

PATIENT

DRUGS (1)
  1. TNKASE [Suspect]
     Active Substance: TENECTEPLASE
     Indication: Product used for unknown indication
     Route: 042

REACTIONS (2)
  - Vein rupture [Unknown]
  - Extravasation [Unknown]
